FAERS Safety Report 16401680 (Version 1)
Quarter: 2019Q2

REPORT INFORMATION
  Report Type: Spontaneous
  Country: US (occurrence: US)
  Receive Date: 20190606
  Receipt Date: 20190606
  Transmission Date: 20190711
  Serious: Yes (Other)
  Sender: FDA-Public Use
  Company Number: US-IBSA PHARMA-TIR-2019-0526

PATIENT
  Sex: Female

DRUGS (6)
  1. COMPOUNDED TRIIODOTHYRONINE (T3) [Concomitant]
     Active Substance: LIOTHYRONINE SODIUM
     Indication: PRODUCT USED FOR UNKNOWN INDICATION
  2. TIROSINT [Suspect]
     Active Substance: LEVOTHYROXINE SODIUM
     Indication: HYPOTHYROIDISM
     Dosage: 137MCG DAILY AND ONE 75MCG CAPSULE ONE DAY PER WEEK
     Route: 048
     Dates: start: 201711
  3. TIROSINT [Suspect]
     Active Substance: LEVOTHYROXINE SODIUM
     Dosage: 137MCG DAILY
     Route: 048
  4. ATENOLOL. [Concomitant]
     Active Substance: ATENOLOL
     Indication: SINUS RHYTHM
  5. TIROSINT [Suspect]
     Active Substance: LEVOTHYROXINE SODIUM
     Indication: HYPOTHYROIDISM
     Dosage: 137MCG DAILY AND ONE 75MCG CAPSULE ONE DAY PER WEEK
     Route: 048
     Dates: start: 201711
  6. CLARITIN [Concomitant]
     Active Substance: LORATADINE
     Indication: PRODUCT USED FOR UNKNOWN INDICATION

REACTIONS (7)
  - Sleep disorder [Unknown]
  - Heart rate increased [Recovered/Resolved]
  - Lyme disease [Unknown]
  - Anxiety [Recovered/Resolved]
  - Back injury [Not Recovered/Not Resolved]
  - Hyperhidrosis [Recovered/Resolved]
  - Drug level above therapeutic [Recovered/Resolved]

NARRATIVE: CASE EVENT DATE: 2017
